FAERS Safety Report 4954910-7 (Version None)
Quarter: 2006Q1

REPORT INFORMATION
  Report Type: 
  Country: None (occurrence: None)
  Receive Date: 20060322
  Receipt Date: 20060313
  Transmission Date: 20060701
  Serious: Yes (Other)
  Sender: FDA-Public Use
  Company Number: GB200603003166

PATIENT
  Age: 9 Year
  Sex: Male
  Weight: 25.9 kg

DRUGS (2)
  1. STRATTERA [Suspect]
     Indication: ATTENTION DEFICIT/HYPERACTIVITY DISORDER
     Dosage: SEE IMAGE,  ORAL
     Route: 048
     Dates: start: 20050110, end: 20050801
  2. STRATTERA [Suspect]
     Indication: ATTENTION DEFICIT/HYPERACTIVITY DISORDER
     Dosage: SEE IMAGE,  ORAL
     Route: 048
     Dates: start: 20050801, end: 20060303

REACTIONS (1)
  - EPILEPSY [None]
